FAERS Safety Report 6720018-3 (Version None)
Quarter: 2010Q2

REPORT INFORMATION
  Report Type: 
  Country: None (occurrence: None)
  Receive Date: 20100505
  Receipt Date: 20100423
  Transmission Date: 20101027
  Serious: Yes (Disabling)
  Sender: FDA-Public Use
  Company Number: 1000011619

PATIENT
  Age: 44 Year
  Sex: Female

DRUGS (2)
  1. ESCITALOPRAM [Suspect]
     Indication: BIPOLAR DISORDER
     Dosage: 10-30 MG (1 IN 1 D),ORAL
     Route: 048
     Dates: start: 20050401, end: 20080101
  2. LITHIONIT [Concomitant]

REACTIONS (12)
  - AGGRESSION [None]
  - DIARRHOEA [None]
  - HYPERACUSIS [None]
  - LIBIDO INCREASED [None]
  - NAUSEA [None]
  - OVERDOSE [None]
  - PHOTOPHOBIA [None]
  - SELF-INJURIOUS IDEATION [None]
  - SPEECH DISORDER [None]
  - SUICIDAL IDEATION [None]
  - TINNITUS [None]
  - VISUAL IMPAIRMENT [None]
